FAERS Safety Report 9175293 (Version 1)
Quarter: 2013Q1

REPORT INFORMATION
  Report Type: Spontaneous
  Country: US (occurrence: US)
  Receive Date: 20130320
  Receipt Date: 20130320
  Transmission Date: 20140127
  Serious: Yes (Other)
  Sender: FDA-Public Use
  Company Number: US-ROCHE-1202861

PATIENT
  Sex: Female

DRUGS (6)
  1. KLONOPIN [Suspect]
     Indication: PRODUCT USED FOR UNKNOWN INDICATION
     Route: 065
  2. PRISTIQ [Concomitant]
     Indication: DEPRESSION
     Route: 065
     Dates: end: 20130223
  3. LUVOX [Concomitant]
     Indication: DEPRESSION
     Route: 065
  4. LUVOX [Concomitant]
     Indication: ANXIETY
  5. VALIUM [Concomitant]
     Indication: ANXIETY
     Route: 065
  6. XANAX [Concomitant]

REACTIONS (10)
  - Memory impairment [Not Recovered/Not Resolved]
  - Somnolence [Unknown]
  - Glaucoma [Not Recovered/Not Resolved]
  - Blindness [Not Recovered/Not Resolved]
  - Hypoaesthesia [Not Recovered/Not Resolved]
  - Pain in extremity [Not Recovered/Not Resolved]
  - Rash [Not Recovered/Not Resolved]
  - Pruritus [Not Recovered/Not Resolved]
  - Psychotic disorder [Not Recovered/Not Resolved]
  - Urinary incontinence [Not Recovered/Not Resolved]
